FAERS Safety Report 10627812 (Version 1)
Quarter: 2014Q4

REPORT INFORMATION
  Report Type: Spontaneous
  Country: US (occurrence: US)
  Receive Date: 20141205
  Receipt Date: 20141205
  Transmission Date: 20150529
  Serious: No
  Sender: FDA-Public Use
  Company Number: US-009507513-1412USA000808

PATIENT
  Sex: Female
  Weight: 61.5 kg

DRUGS (3)
  1. DESONIDE. [Concomitant]
     Active Substance: DESONIDE
     Dosage: UNK
     Dates: start: 20120125
  2. TRIAMCINOLONE [Concomitant]
     Active Substance: TRIAMCINOLONE
     Dosage: UNK
     Dates: start: 20120125
  3. DECADRON [Suspect]
     Active Substance: DEXAMETHASONE
     Indication: DERMATITIS ATOPIC
     Dosage: 10 MG, ONCE
     Route: 030
     Dates: start: 20140726, end: 20140726

REACTIONS (1)
  - Therapeutic response decreased [Unknown]

NARRATIVE: CASE EVENT DATE: 20140726
